FAERS Safety Report 14669284 (Version 1)
Quarter: 2018Q1

REPORT INFORMATION
  Report Type: Spontaneous
  Country: NL (occurrence: NL)
  Receive Date: 20180322
  Receipt Date: 20180322
  Transmission Date: 20180509
  Serious: Yes (Other)
  Sender: FDA-Public Use
  Company Number: NL-MYLANLABS-2018M1017011

PATIENT
  Age: 38 Year
  Sex: Female
  Weight: 55 kg

DRUGS (1)
  1. LIDOCAINE. [Suspect]
     Active Substance: LIDOCAINE
     Indication: ANAESTHESIA
     Dosage: 300MG TOTAL DOSE
     Route: 050

REACTIONS (4)
  - Disorganised speech [Recovered/Resolved]
  - Seizure [Recovered/Resolved]
  - Myoclonus [Recovered/Resolved]
  - Restlessness [Recovered/Resolved]
